FAERS Safety Report 24552922 (Version 2)
Quarter: 2024Q4

REPORT INFORMATION
  Report Type: Spontaneous
  Country: IE (occurrence: IE)
  Receive Date: 20241027
  Receipt Date: 20241128
  Transmission Date: 20250115
  Serious: Yes (Other)
  Sender: ORGANON
  Company Number: None

PATIENT
  Age: 5 Year
  Sex: Male
  Weight: 20 kg

DRUGS (3)
  1. MONTELUKAST SODIUM [Suspect]
     Active Substance: MONTELUKAST SODIUM
     Indication: Asthma
     Dosage: 4 MILLIGRAM
     Route: 048
     Dates: start: 20200401, end: 20240101
  2. MONTELUKAST SODIUM [Suspect]
     Active Substance: MONTELUKAST SODIUM
     Dosage: 4 MILLIGRAM
     Route: 048
     Dates: start: 20200618, end: 20220226
  3. BECLOMETHASONE DIPROPIONATE [Concomitant]
     Active Substance: BECLOMETHASONE DIPROPIONATE
     Dosage: UNK (EVOHALER)
     Route: 045

REACTIONS (15)
  - Abnormal behaviour [Recovering/Resolving]
  - Aggression [Recovering/Resolving]
  - Defiant behaviour [Recovering/Resolving]
  - Illogical thinking [Recovering/Resolving]
  - Separation anxiety disorder [Recovering/Resolving]
  - Epistaxis [Recovered/Resolved]
  - Nodule [Unknown]
  - Rash [Unknown]
  - Loss of personal independence in daily activities [Recovering/Resolving]
  - Dysphonia [Recovered/Resolved]
  - Thirst [Unknown]
  - Hyperaesthesia [Unknown]
  - Agitation [Recovering/Resolving]
  - Hostility [Recovering/Resolving]
  - Mood altered [Recovering/Resolving]

NARRATIVE: CASE EVENT DATE: 20201201
